FAERS Safety Report 18041723 (Version 1)
Quarter: 2020Q3

REPORT INFORMATION
  Report Type: Spontaneous
  Country: PT (occurrence: PT)
  Receive Date: 20200720
  Receipt Date: 20200720
  Transmission Date: 20201103
  Serious: Yes (Other)
  Sender: FDA-Public Use
  Company Number: PT-LUPIN PHARMACEUTICALS INC.-2020-03378

PATIENT
  Sex: Female

DRUGS (4)
  1. ESTRADIOL. [Suspect]
     Active Substance: ESTRADIOL
     Indication: STEROID THERAPY
  2. NORETHINDRONE. [Suspect]
     Active Substance: NORETHINDRONE
     Indication: HORMONE REPLACEMENT THERAPY
     Dosage: UNK (HAD BEEN RECEIVING FOR 9 YEARS)
     Route: 065
  3. NORETHINDRONE. [Suspect]
     Active Substance: NORETHINDRONE
     Indication: STEROID THERAPY
  4. ESTRADIOL. [Suspect]
     Active Substance: ESTRADIOL
     Indication: HORMONE REPLACEMENT THERAPY
     Dosage: UNK (HAD BEEN RECEIVING FOR 9 YEARS)
     Route: 065

REACTIONS (1)
  - Subclavian vein thrombosis [Unknown]
